FAERS Safety Report 19054378 (Version 2)
Quarter: 2021Q2

REPORT INFORMATION
  Report Type: Spontaneous
  Country: TR (occurrence: TR)
  Receive Date: 20210324
  Receipt Date: 20210413
  Transmission Date: 20210717
  Serious: Yes (Hospitalization, Other)
  Sender: FDA-Public Use
  Company Number: TR-GILEAD-2021-0516259

PATIENT
  Age: 31 Year
  Sex: Male

DRUGS (2)
  1. BIKTARVY [Suspect]
     Active Substance: BICTEGRAVIR SODIUM\EMTRICITABINE\TENOFOVIR ALAFENAMIDE FUMARATE
     Indication: HIV INFECTION
     Dosage: UNK
     Route: 065
     Dates: start: 202102
  2. BACTRIM [Suspect]
     Active Substance: SULFAMETHOXAZOLE\TRIMETHOPRIM
     Indication: DIARRHOEA
     Dosage: UNK
     Route: 065
     Dates: start: 202101

REACTIONS (6)
  - Vomiting [Recovered/Resolved]
  - Headache [Unknown]
  - Intracranial mass [Unknown]
  - Pancreatitis [Unknown]
  - Lymphocyte count decreased [Recovered/Resolved]
  - Dizziness [Unknown]
